FAERS Safety Report 9005294 (Version 1)
Quarter: 2013Q1

REPORT INFORMATION
  Report Type: Spontaneous
  Country: US (occurrence: US)
  Receive Date: 20130108
  Receipt Date: 20130108
  Transmission Date: 20140127
  Serious: No
  Sender: FDA-Public Use
  Company Number: US-PFIZER INC-2013001309

PATIENT
  Age: 12 Year
  Sex: Male

DRUGS (1)
  1. VANCOMYCIN HCL [Suspect]

REACTIONS (2)
  - Red man syndrome [Unknown]
  - Drug hypersensitivity [Unknown]
